FAERS Safety Report 26108155 (Version 1)
Quarter: 2025Q4

REPORT INFORMATION
  Report Type: Report from Study
  Country: PH (occurrence: PH)
  Receive Date: 20251201
  Receipt Date: 20251201
  Transmission Date: 20260117
  Serious: Yes (Death)
  Sender: OTSUKA
  Company Number: PH-MMM-Otsuka-IE46H5Z1

PATIENT

DRUGS (4)
  1. TOLVAPTAN [Suspect]
     Active Substance: TOLVAPTAN
     Indication: Diabetes mellitus
     Dosage: 0.5 DF, TIW  (15 MG ? TABLET MONDAY, WEDNESDAY AND FRIDAY (MWF)
     Dates: start: 202504, end: 20251105
  2. TOLVAPTAN [Suspect]
     Active Substance: TOLVAPTAN
     Indication: Diabetic complication cardiovascular
  3. TOLVAPTAN [Suspect]
     Active Substance: TOLVAPTAN
     Indication: Diabetic nephropathy
  4. TOLVAPTAN [Suspect]
     Active Substance: TOLVAPTAN
     Indication: Lung disorder

REACTIONS (2)
  - Cardiac arrest [Fatal]
  - Product prescribing issue [Unknown]

NARRATIVE: CASE EVENT DATE: 20250401
